FAERS Safety Report 6586000-4 (Version None)
Quarter: 2010Q1

REPORT INFORMATION
  Report Type: 
  Country: None (occurrence: None)
  Receive Date: 20100217
  Receipt Date: 20100210
  Transmission Date: 20100710
  Serious: Yes (Hospitalization)
  Sender: FDA-Public Use
  Company Number: JP-ABBOTT-10P-087-0625563-00

PATIENT
  Age: 70 Year
  Sex: Male

DRUGS (3)
  1. CLARITHROMYCIN [Suspect]
     Indication: HELICOBACTER GASTRITIS
     Route: 048
  2. LANSOPRAZOLE [Suspect]
     Indication: HELICOBACTER GASTRITIS
     Route: 048
  3. AMOXICILLIN [Suspect]
     Indication: HELICOBACTER GASTRITIS
     Route: 048

REACTIONS (3)
  - BLOOD SODIUM DECREASED [None]
  - MUSCULAR WEAKNESS [None]
  - PAIN IN EXTREMITY [None]
